FAERS Safety Report 22024700 (Version 1)
Quarter: 2023Q1

REPORT INFORMATION
  Report Type: Spontaneous
  Country: US (occurrence: None)
  Receive Date: 20230223
  Receipt Date: 20230223
  Transmission Date: 20230418
  Serious: Yes (Other)
  Sender: FDA-Public Use
  Company Number: US-ROCHE-3039567

PATIENT
  Age: 25 Year
  Sex: Female
  Weight: 88.076 kg

DRUGS (1)
  1. XOLAIR [Suspect]
     Active Substance: OMALIZUMAB
     Indication: Idiopathic urticaria
     Dosage: FORMULATION: INJECTION?IT WAS REPORTED LAST TIME XOLAIR WAS ADMINISTERED WAS 26/JAN/2022.
     Route: 030
     Dates: start: 20190617, end: 20220122

REACTIONS (2)
  - Hodgkin^s disease [Not Recovered/Not Resolved]
  - Off label use [Unknown]

NARRATIVE: CASE EVENT DATE: 20220131
